FAERS Safety Report 5728984-X (Version None)
Quarter: 2008Q2

REPORT INFORMATION
  Report Type: 
  Country: None (occurrence: None)
  Receive Date: 20080430
  Receipt Date: 20080227
  Transmission Date: 20081010
  Serious: No
  Sender: FDA-Public Use
  Company Number: 2008PV034400

PATIENT
  Age: 63 Year
  Sex: Female
  Weight: 78.4723 kg

DRUGS (6)
  1. SYMLIN [Suspect]
     Indication: TYPE 2 DIABETES MELLITUS
     Dosage: 30 MCG;TID;SC ; 15 MCG;TID;SC
     Route: 058
     Dates: start: 20070701, end: 20071201
  2. SYMLIN [Suspect]
     Indication: TYPE 2 DIABETES MELLITUS
     Dosage: 30 MCG;TID;SC ; 15 MCG;TID;SC
     Route: 058
     Dates: start: 20071201, end: 20080222
  3. JANUVIA [Concomitant]
  4. METFORMIN [Concomitant]
  5. PRANDIN [Concomitant]
  6. ZANTAC [Concomitant]

REACTIONS (7)
  - ARTHRALGIA [None]
  - DECREASED APPETITE [None]
  - FATIGUE [None]
  - LISTLESS [None]
  - NAUSEA [None]
  - PALLOR [None]
  - VOMITING [None]
